FAERS Safety Report 10686971 (Version 1)
Quarter: 2015Q1

REPORT INFORMATION
  Report Type: Spontaneous
  Country: DK (occurrence: DK)
  Receive Date: 20150102
  Receipt Date: 20150102
  Transmission Date: 20150720
  Serious: Yes (Hospitalization)
  Sender: FDA-Public Use
  Company Number: DK-JNJFOC-20141213514

PATIENT
  Age: 67 Year
  Sex: Male

DRUGS (4)
  1. MAREVAN [Interacting]
     Active Substance: WARFARIN SODIUM
     Indication: THROMBOSIS
     Dosage: STRENGTH 2.5 MG.
     Route: 048
  2. HJERTEMAGNYL [Concomitant]
     Active Substance: ASPIRIN\MAGNESIUM OXIDE
     Indication: PRODUCT USED FOR UNKNOWN INDICATION
     Dosage: DOSAGE:82.
     Route: 048
  3. PREDNISOLON [Concomitant]
     Active Substance: PREDNISOLONE
     Indication: PRODUCT USED FOR UNKNOWN INDICATION
     Route: 065
  4. BRENTAN [Suspect]
     Active Substance: HYDROCORTISONE\MICONAZOLE
     Indication: CANDIDA INFECTION
     Dosage: STRENGTH 20.0 MG/G. PSM RING OF PROTESE 4 X DAGLIGT.
     Route: 048
     Dates: start: 20140618, end: 201406

REACTIONS (3)
  - International normalised ratio increased [Recovered/Resolved]
  - Drug interaction [Recovered/Resolved]
  - Mouth haemorrhage [Recovered/Resolved]

NARRATIVE: CASE EVENT DATE: 20140618
